FAERS Safety Report 7414449-6 (Version None)
Quarter: 2011Q2

REPORT INFORMATION
  Report Type: 
  Country: None (occurrence: None)
  Receive Date: 20110414
  Receipt Date: 20110106
  Transmission Date: 20111010
  Serious: Yes (Hospitalization)
  Sender: FDA-Public Use
  Company Number: US-BAYER-201035090NA

PATIENT
  Age: 29 Year
  Sex: Female
  Weight: 63.492 kg

DRUGS (4)
  1. METOPROLOL TARTRATE [Concomitant]
     Dosage: UNK
     Dates: start: 20090630
  2. YASMIN [Suspect]
     Indication: MENSTRUAL CYCLE MANAGEMENT
     Dosage: UNK
  3. YAZ [Suspect]
     Indication: CONTRACEPTION
     Dates: start: 20060801, end: 20090615
  4. YASMIN [Suspect]
     Indication: CONTRACEPTION

REACTIONS (3)
  - DEEP VEIN THROMBOSIS [None]
  - PULMONARY EMBOLISM [None]
  - PAIN [None]
